FAERS Safety Report 17134864 (Version 1)
Quarter: 2019Q4

REPORT INFORMATION
  Report Type: Report from Study
  Country: BE (occurrence: BE)
  Receive Date: 20191210
  Receipt Date: 20191210
  Transmission Date: 20200122
  Serious: Yes (Hospitalization)
  Sender: FDA-Public Use
  Company Number: PHHY2015BE036996

PATIENT
  Age: 54 Year
  Sex: Male
  Weight: 85 kg

DRUGS (3)
  1. URFADYN [Concomitant]
     Active Substance: NIFURTOINOL
     Indication: ANTIBIOTIC PROPHYLAXIS
     Dosage: 100 MG, UNK
     Route: 065
     Dates: start: 20141030, end: 20141112
  2. GILENYA [Suspect]
     Active Substance: FINGOLIMOD HYDROCHLORIDE
     Indication: MULTIPLE SCLEROSIS
     Dosage: 0.5 MG, QD
     Route: 048
     Dates: start: 20130329
  3. CLEXANE [Concomitant]
     Active Substance: ENOXAPARIN SODIUM
     Indication: THROMBOSIS
     Dosage: 40 MG, UNK
     Route: 065
     Dates: start: 20141030, end: 20141110

REACTIONS (2)
  - Calculus bladder [Recovered/Resolved]
  - Urethral stenosis [Recovered/Resolved]

NARRATIVE: CASE EVENT DATE: 20141029
